FAERS Safety Report 11915325 (Version 2)
Quarter: 2016Q1

REPORT INFORMATION
  Report Type: Report from Study
  Country: PL (occurrence: PL)
  Receive Date: 20160114
  Receipt Date: 20160307
  Transmission Date: 20160526
  Serious: Yes (Death, Hospitalization)
  Sender: FDA-Public Use
  Company Number: PL-ROCHE-1693638

PATIENT
  Age: 74 Year
  Sex: Female
  Weight: 50 kg

DRUGS (2)
  1. LETROX [Concomitant]
     Active Substance: LEVOTHYROXINE SODIUM
     Indication: HYPOTHYROIDISM
     Route: 065
     Dates: start: 1986, end: 20151226
  2. TOCILIZUMAB [Suspect]
     Active Substance: TOCILIZUMAB
     Indication: RHEUMATOID ARTHRITIS
     Route: 042
     Dates: start: 20151217

REACTIONS (3)
  - Pancytopenia [Fatal]
  - Renal failure [Unknown]
  - Electrolyte imbalance [Fatal]

NARRATIVE: CASE EVENT DATE: 20151226
